FAERS Safety Report 4331216-0 (Version None)
Quarter: 2004Q1

REPORT INFORMATION
  Report Type: 
  Country: None (occurrence: None)
  Receive Date: 20040331
  Receipt Date: 20040318
  Transmission Date: 20041129
  Serious: Yes (Disabling)
  Sender: FDA-Public Use
  Company Number: 04P-167-0254114-00

PATIENT
  Age: 59 Year
  Sex: Male
  Weight: 117 kg

DRUGS (5)
  1. HUMIRA [Suspect]
     Indication: RHEUMATOID ARTHRITIS
     Dosage: 40 MG, 1 IN 2 WK, SUBCUTANEOUS
     Route: 058
     Dates: start: 20030428
  2. DICLOFENAC SODIUM [Concomitant]
  3. OMEPRAZOLE [Concomitant]
  4. FOLIC ACID [Concomitant]
  5. METHOTREXATE SODIUM [Concomitant]

REACTIONS (1)
  - RETINAL DETACHMENT [None]
